FAERS Safety Report 25873178 (Version 1)
Quarter: 2025Q4

REPORT INFORMATION
  Report Type: Spontaneous
  Country: EU (occurrence: EU)
  Receive Date: 20251002
  Receipt Date: 20251002
  Transmission Date: 20260118
  Serious: Yes (Hospitalization, Other)
  Sender: HIKMA
  Company Number: None

PATIENT
  Age: 71 Year
  Sex: Female

DRUGS (4)
  1. ALIMTA [Suspect]
     Active Substance: PEMETREXED DISODIUM
     Indication: Lung adenocarcinoma
     Dosage: 1 DOSAGE FORM, SINGLE
     Route: 042
     Dates: start: 20250205, end: 20250205
  2. CARBOPLATIN [Suspect]
     Active Substance: CARBOPLATIN
     Indication: Lung adenocarcinoma
     Dosage: 1 DOSAGE FORM, SINGLE
     Route: 042
     Dates: start: 20250205, end: 20250205
  3. KEYTRUDA [Suspect]
     Active Substance: PEMBROLIZUMAB
     Indication: Lung adenocarcinoma
     Dosage: 1 DOSAGE FORM, CYCLICAL
     Route: 042
     Dates: start: 20250205
  4. LOVENOX [Suspect]
     Active Substance: ENOXAPARIN SODIUM
     Indication: Thrombosis
     Dosage: 2 DOSAGE FORM, QD
     Route: 058
     Dates: start: 20250207, end: 20250220

REACTIONS (3)
  - Purpura [Recovering/Resolving]
  - Neutropenia [Recovering/Resolving]
  - Thrombocytopenia [Recovering/Resolving]

NARRATIVE: CASE EVENT DATE: 20250210
